FAERS Safety Report 6516194-8 (Version None)
Quarter: 2009Q4

REPORT INFORMATION
  Report Type: 
  Country: None (occurrence: None)
  Receive Date: 20091223
  Receipt Date: 20091217
  Transmission Date: 20100525
  Serious: Yes (Death)
  Sender: FDA-Public Use
  Company Number: CH-ASTRAZENECA-2009SE32513

PATIENT
  Age: 82 Year
  Sex: Female

DRUGS (14)
  1. SEROQUEL [Suspect]
     Indication: RESTLESSNESS
     Route: 048
     Dates: start: 20091123, end: 20091202
  2. SEROQUEL [Suspect]
     Indication: AGITATION
     Route: 048
     Dates: start: 20091123, end: 20091202
  3. SORTIS [Suspect]
     Indication: HYPERCHOLESTEROLAEMIA
     Route: 048
     Dates: end: 20091202
  4. ALDACTONE [Suspect]
     Indication: ESSENTIAL HYPERTENSION
     Route: 048
     Dates: end: 20091124
  5. PANTOPRAZOLE [Suspect]
     Route: 048
     Dates: end: 20091202
  6. AXURA [Suspect]
     Indication: DEMENTIA ALZHEIMER'S TYPE
     Route: 048
     Dates: start: 20091126, end: 20091202
  7. DAFALGAN [Suspect]
     Route: 048
     Dates: start: 20091127, end: 20091129
  8. METOPROLOL TARTRATE [Suspect]
     Indication: ESSENTIAL HYPERTENSION
     Route: 048
     Dates: start: 20091128
  9. ASPIRIN [Concomitant]
     Route: 048
  10. BUDENOFALK [Concomitant]
     Route: 048
  11. TORSEMIDE [Concomitant]
     Route: 048
  12. VITARUBIN [Concomitant]
     Route: 048
     Dates: start: 20091123
  13. FRAGMIN [Concomitant]
     Route: 058
     Dates: start: 20091123, end: 20091128
  14. AUGMENTIN [Concomitant]
     Route: 042
     Dates: start: 20091201

REACTIONS (2)
  - HEPATOCELLULAR INJURY [None]
  - INTERNATIONAL NORMALISED RATIO INCREASED [None]
